FAERS Safety Report 20769104 (Version 1)
Quarter: 2022Q2

REPORT INFORMATION
  Report Type: Spontaneous
  Country: US (occurrence: None)
  Receive Date: 20220428
  Receipt Date: 20220428
  Transmission Date: 20220721
  Serious: No
  Sender: FDA-Public Use
  Company Number: None

PATIENT
  Age: 50 Year
  Sex: Male

DRUGS (1)
  1. CLINOLIPID [Suspect]
     Active Substance: OLIVE OIL\SOYBEAN OIL
     Indication: Intestinal fistula
     Dosage: OTHER FREQUENCY : 2 DAYS PER WEEK;?
     Route: 042
     Dates: start: 20210930

REACTIONS (2)
  - Hypoaesthesia [None]
  - Product storage error [None]

NARRATIVE: CASE EVENT DATE: 20220425
